FAERS Safety Report 10748411 (Version 1)
Quarter: 2015Q1

REPORT INFORMATION
  Report Type: Spontaneous
  Country: US (occurrence: None)
  Receive Date: 20150120
  Receipt Date: 20150120
  Transmission Date: 20150721
  Serious: No
  Sender: FDA-Public Use
  Company Number: AEGR000999

PATIENT
  Age: 60 Year
  Sex: Male

DRUGS (9)
  1. METOPROLOL (METOPROLOL TARTRATE) [Concomitant]
     Active Substance: METOPROLOL TARTRATE
  2. ALVESCO (CICLESONIDE) [Concomitant]
  3. ZANTAC [Concomitant]
     Active Substance: RANITIDINE HYDROCHLORIDE
  4. VITAMIN D (COLECALCIFEROL) [Concomitant]
  5. ASPIRIN (ACETYLSALICYLIC ACID) [Concomitant]
     Active Substance: ASPIRIN
  6. OMEGA 3 6 9 (OMEGA 9 FATTY ACIDS, OMEGA-3 FATTY ACIDS, OMEGA-6 FATTY ACIDS) [Concomitant]
  7. JUXTAPID [Suspect]
     Active Substance: LOMITAPIDE MESYLATE
     Indication: BLOOD CHOLESTEROL ABNORMAL
     Route: 048
     Dates: start: 201312, end: 201401
  8. PAXIL [Concomitant]
     Active Substance: PAROXETINE HYDROCHLORIDE
  9. VITAMIN E (TOCOPHERYL ACETATE) [Concomitant]

REACTIONS (7)
  - Viral infection [None]
  - Inappropriate schedule of drug administration [None]
  - Diarrhoea [None]
  - Abdominal pain [None]
  - Off label use [None]
  - Therapy cessation [None]
  - Abdominal distension [None]

NARRATIVE: CASE EVENT DATE: 2014
